FAERS Safety Report 11268927 (Version 1)
Quarter: 2015Q3

REPORT INFORMATION
  Report Type: Spontaneous
  Country: US (occurrence: None)
  Receive Date: 20150710
  Receipt Date: 20150710
  Transmission Date: 20151125
  Serious: No
  Sender: FDA-Public Use
  Company Number: BR15-179-AE-PATIENT #1

PATIENT
  Age: 2 Year
  Sex: Female

DRUGS (2)
  1. OXYCODONE [Suspect]
     Active Substance: OXYCODONE
  2. BUPRENORPHINE HCL/NALOXONE HCL DIHYDRATE [Suspect]
     Active Substance: BUPRENORPHINE\NALOXONE

REACTIONS (7)
  - Loss of consciousness [None]
  - Vomiting [None]
  - Overdose [None]
  - Toxicity to various agents [None]
  - Opiates positive [None]
  - Unresponsive to stimuli [None]
  - Homicide [None]

NARRATIVE: CASE EVENT DATE: 20141019
